FAERS Safety Report 7577104-8 (Version None)
Quarter: 2011Q2

REPORT INFORMATION
  Report Type: 
  Country: None (occurrence: None)
  Receive Date: 20110628
  Receipt Date: 20110608
  Transmission Date: 20111010
  Serious: Yes (Other)
  Sender: FDA-Public Use
  Company Number: US-BAYER-2011-010337

PATIENT
  Age: 17 Year
  Sex: Female
  Weight: 81.633 kg

DRUGS (7)
  1. YAZ [Suspect]
     Indication: CONTRACEPTION
     Dosage: UNK
     Route: 048
     Dates: start: 20091101, end: 20100301
  2. PROCHLORPERAZINE TAB [Concomitant]
     Indication: NAUSEA
     Dosage: UNK
     Dates: start: 20100224, end: 20100301
  3. AYGESTIN [Concomitant]
     Indication: ENDOMETRIOSIS
  4. LUPRON [Concomitant]
     Indication: ENDOMETRIOSIS
  5. OXYCODONE HCL [Concomitant]
     Indication: ANALGESIC THERAPY
     Dosage: UNK
     Dates: start: 20100224, end: 20100301
  6. PERCOCET [Concomitant]
     Indication: PAIN
     Dosage: UNK
     Dates: start: 20100223
  7. AYGESTIN [Concomitant]
     Dosage: 2 TABS DAILY

REACTIONS (4)
  - GALLBLADDER DISORDER [None]
  - PAIN [None]
  - ANXIETY [None]
  - CHOLECYSTITIS CHRONIC [None]
